FAERS Safety Report 21746963 (Version 5)
Quarter: 2023Q4

REPORT INFORMATION
  Report Type: Report from Study
  Country: CN (occurrence: CN)
  Receive Date: 20221219
  Receipt Date: 20231014
  Transmission Date: 20240110
  Serious: Yes (Other)
  Sender: FDA-Public Use
  Company Number: CN-TAKEDA-2022TUS096390

PATIENT
  Age: 40 Year
  Sex: Male
  Weight: 75 kg

DRUGS (9)
  1. VEDOLIZUMAB [Suspect]
     Active Substance: VEDOLIZUMAB
     Indication: Colitis ulcerative
     Dosage: 300 MILLIGRAM
     Route: 042
     Dates: start: 20221125
  2. MESALAMINE [Suspect]
     Active Substance: MESALAMINE
     Indication: Inflammatory bowel disease
     Dosage: 1 GRAM, QID
     Route: 048
     Dates: start: 20221109, end: 20221209
  3. GLUTAMINE [Concomitant]
     Active Substance: GLUTAMINE
     Indication: Gastrointestinal disorder
     Dosage: UNK UNK, TID
     Route: 048
     Dates: start: 20221125
  4. ESOMEPRAZOLE MAGNESIUM [Concomitant]
     Active Substance: ESOMEPRAZOLE\ESOMEPRAZOLE MAGNESIUM\ESOMEPRAZOLE MAGNESIUM DIHYDRATE
     Indication: Inflammatory bowel disease
     Dosage: 20 MILLIGRAM, QD
     Route: 048
     Dates: start: 20221125
  5. BACILLUS LICHENIFORMIS CAPSULE,LIVE [Concomitant]
     Indication: Gastrointestinal disorder
     Dosage: 0.5 GRAM, TID
     Route: 048
     Dates: start: 20221125
  6. PREDNISONE ACETATE [Concomitant]
     Active Substance: PREDNISONE ACETATE
     Indication: Inflammatory bowel disease
     Dosage: 50 MILLIGRAM, QD
     Route: 048
     Dates: start: 20221125, end: 202303
  7. CALCIUM CARBONATE\CHOLECALCIFEROL [Concomitant]
     Active Substance: CALCIUM CARBONATE\CHOLECALCIFEROL
     Indication: Mineral supplementation
     Dosage: 0.6 GRAM, QD
     Route: 048
     Dates: start: 20221117
  8. CARBOHYDRATES\FATTY ACIDS\MINERALS\PROTEIN\VITAMINS [Concomitant]
     Active Substance: CARBOHYDRATES\FATTY ACIDS\MINERALS\PROTEIN\VITAMINS
     Indication: Nutritional supplementation
     Dosage: 50 GRAM, QID
     Route: 048
     Dates: start: 20221115, end: 20230110
  9. MESALAMINE [Concomitant]
     Active Substance: MESALAMINE
     Dosage: UNK
     Dates: start: 20221109

REACTIONS (3)
  - Liver injury [Recovered/Resolved]
  - Renal injury [Recovered/Resolved]
  - COVID-19 [Recovered/Resolved]

NARRATIVE: CASE EVENT DATE: 20221208
